FAERS Safety Report 5615006-4 (Version None)
Quarter: 2008Q1

REPORT INFORMATION
  Report Type: 
  Country: None (occurrence: None)
  Receive Date: 20080201
  Receipt Date: 20080125
  Transmission Date: 20080703
  Serious: Yes (Hospitalization)
  Sender: FDA-Public Use
  Company Number: 163-21880-07111010

PATIENT
  Age: 78 Year
  Sex: Female

DRUGS (1)
  1. REVLIMID [Suspect]
     Indication: MULTIPLE MYELOMA
     Dosage: 20 MG, DAILY X21 DAYS, ORAL, 15 MG, DAILY X21 DAYS, ORAL
     Route: 048
     Dates: start: 20070501

REACTIONS (4)
  - ARRHYTHMIA [None]
  - DIZZINESS [None]
  - NASOPHARYNGITIS [None]
  - THERAPY REGIMEN CHANGED [None]
